FAERS Safety Report 25797290 (Version 1)
Quarter: 2025Q3

REPORT INFORMATION
  Report Type: Report from Study
  Country: CN (occurrence: CN)
  Receive Date: 20250912
  Receipt Date: 20250912
  Transmission Date: 20251021
  Serious: Yes (Hospitalization)
  Sender: MARINUS PHARMACEUTICALS
  Company Number: CN-TENACIA BIOTECHNOLOGY (SHANGHAI) COMPANY, LTD.-202500116

PATIENT

DRUGS (15)
  1. GANAXOLONE [Suspect]
     Active Substance: GANAXOLONE
     Indication: CDKL5 deficiency disorder
     Route: 048
     Dates: start: 20250513, end: 20250519
  2. GANAXOLONE [Suspect]
     Active Substance: GANAXOLONE
     Indication: Epilepsy
     Route: 048
     Dates: start: 20250520, end: 20250526
  3. GANAXOLONE [Suspect]
     Active Substance: GANAXOLONE
     Route: 048
     Dates: start: 20250527, end: 20250602
  4. GANAXOLONE [Suspect]
     Active Substance: GANAXOLONE
     Route: 048
     Dates: start: 20250603, end: 20250613
  5. GANAXOLONE [Suspect]
     Active Substance: GANAXOLONE
     Route: 048
     Dates: start: 20250613, end: 20250707
  6. GANAXOLONE [Suspect]
     Active Substance: GANAXOLONE
     Route: 048
     Dates: start: 20250708, end: 20250725
  7. GANAXOLONE [Suspect]
     Active Substance: GANAXOLONE
     Route: 048
     Dates: start: 20250726, end: 20250811
  8. RAPAMYCIN [Concomitant]
     Active Substance: SIROLIMUS
     Indication: Haemangioma
     Route: 048
     Dates: start: 2023
  9. CLOBAZAM [Concomitant]
     Active Substance: CLOBAZAM
     Indication: CDKL5 deficiency disorder
     Route: 048
     Dates: start: 2023, end: 20250627
  10. CLOBAZAM [Concomitant]
     Active Substance: CLOBAZAM
     Indication: Epilepsy
     Route: 048
     Dates: start: 20250628, end: 20250702
  11. CLOBAZAM [Concomitant]
     Active Substance: CLOBAZAM
     Route: 048
     Dates: start: 20250703
  12. LAMOTRIGINE [Concomitant]
     Active Substance: LAMOTRIGINE
     Indication: CDKL5 deficiency disorder
     Route: 048
     Dates: start: 2023
  13. LAMOTRIGINE [Concomitant]
     Active Substance: LAMOTRIGINE
     Indication: Epilepsy
  14. VALPROATE SODIUM [Concomitant]
     Active Substance: VALPROATE SODIUM
     Indication: CDKL5 deficiency disorder
     Route: 048
     Dates: start: 20240425
  15. VALPROATE SODIUM [Concomitant]
     Active Substance: VALPROATE SODIUM
     Indication: Epilepsy

REACTIONS (1)
  - Gastroenteritis [Recovered/Resolved]

NARRATIVE: CASE EVENT DATE: 20250726
